FAERS Safety Report 4669538-6 (Version None)
Quarter: 2005Q2

REPORT INFORMATION
  Report Type: 
  Country: None (occurrence: None)
  Receive Date: 20050520
  Receipt Date: 20050509
  Transmission Date: 20051028
  Serious: Yes (Hospitalization)
  Sender: FDA-Public Use
  Company Number: 2005073375

PATIENT
  Sex: Female
  Weight: 2.5719 kg

DRUGS (4)
  1. MECLIZINE [Suspect]
     Indication: DRUG EXPOSURE DURING PREGNANCY
     Dosage: PLACENTAL
     Route: 064
     Dates: start: 20030101, end: 20030101
  2. PERMETHRIN [Suspect]
     Indication: DRUG EXPOSURE DURING PREGNANCY
     Dosage: PLACENTAL
     Route: 064
     Dates: start: 20030101, end: 20030101
  3. A-200 PYRINATE (PIPERONYL BUTOXIDE, PYRETHRUM EXTRACT) [Suspect]
     Indication: DRUG EXPOSURE DURING PREGNANCY
     Dosage: PLACENTAL
     Route: 064
     Dates: start: 20030101, end: 20030101
  4. ONDANSETRON HCL [Suspect]
     Indication: DRUG EXPOSURE DURING PREGNANCY
     Dosage: PLACENTAL
     Route: 064
     Dates: start: 20030402, end: 20030101

REACTIONS (4)
  - DRUG EXPOSURE DURING PREGNANCY [None]
  - JAUNDICE NEONATAL [None]
  - PREMATURE BABY [None]
  - RETICULOCYTE COUNT INCREASED [None]
